FAERS Safety Report 8623222-2 (Version None)
Quarter: 2012Q3

REPORT INFORMATION
  Report Type: 
  Country: None (occurrence: None)
  Receive Date: 20120827
  Receipt Date: 20120823
  Transmission Date: 20120928
  Serious: Yes (Life-Threatening, Hospitalization)
  Sender: FDA-Public Use
  Company Number: US-US-EMD SERONO, INC.-231387J10USA

PATIENT
  Sex: Female

DRUGS (3)
  1. COUMADIN [Suspect]
     Indication: THROMBOSIS
  2. REBIF [Suspect]
     Indication: MULTIPLE SCLEROSIS
     Route: 058
     Dates: start: 20091119, end: 20100101
  3. REBIF [Suspect]
     Dates: start: 20100101

REACTIONS (2)
  - RECTAL HAEMORRHAGE [None]
  - DEEP VEIN THROMBOSIS [None]
